FAERS Safety Report 8196081-2 (Version None)
Quarter: 2012Q1

REPORT INFORMATION
  Report Type: 
  Country: None (occurrence: None)
  Receive Date: 20120309
  Receipt Date: 20120301
  Transmission Date: 20120608
  Serious: No
  Sender: FDA-Public Use
  Company Number: US-BIOGENIDEC-2012BI007777

PATIENT
  Sex: Female

DRUGS (1)
  1. AVONEX [Suspect]
     Indication: MULTIPLE SCLEROSIS
     Route: 030
     Dates: start: 20000809

REACTIONS (5)
  - MULTIPLE SCLEROSIS RELAPSE [None]
  - MALAISE [None]
  - CHOKING [None]
  - GAIT DISTURBANCE [None]
  - SLOW SPEECH [None]
